FAERS Safety Report 15568105 (Version 1)
Quarter: 2018Q4

REPORT INFORMATION
  Report Type: Spontaneous
  Country: CA (occurrence: CA)
  Receive Date: 20181030
  Receipt Date: 20181030
  Transmission Date: 20190205
  Serious: Yes (Hospitalization)
  Sender: FDA-Public Use
  Company Number: CA-ASTRAZENECA-2018SF39978

PATIENT
  Age: 64 Year
  Sex: Male

DRUGS (9)
  1. FORXIGA [Suspect]
     Active Substance: DAPAGLIFLOZIN
     Indication: DIABETES MELLITUS
     Route: 048
  2. METFORMIN [Concomitant]
     Active Substance: METFORMIN HYDROCHLORIDE
  3. OMEPRAZOLE. [Concomitant]
     Active Substance: OMEPRAZOLE
  4. SITAGLIPTIN [Concomitant]
     Active Substance: SITAGLIPTIN
  5. ATORVASTATIN [Concomitant]
     Active Substance: ATORVASTATIN
  6. AZITHROMYCIN ANHYDROUS. [Concomitant]
     Active Substance: AZITHROMYCIN ANHYDROUS
  7. IRBESARTAN. [Concomitant]
     Active Substance: IRBESARTAN
  8. ASA [Concomitant]
     Active Substance: ASPIRIN
  9. METOPROLOL. [Concomitant]
     Active Substance: METOPROLOL

REACTIONS (9)
  - Albumin globulin ratio abnormal [Recovered/Resolved]
  - Pulseless electrical activity [Recovered/Resolved]
  - Pneumonia [Recovered/Resolved]
  - Blood bicarbonate abnormal [Recovered/Resolved]
  - Blood ketone body increased [Recovered/Resolved]
  - Diabetic ketoacidosis [Recovered/Resolved]
  - Lactic acidosis [Recovered/Resolved]
  - Blood glucose abnormal [Recovered/Resolved]
  - Cardiac failure [Recovered/Resolved]
